FAERS Safety Report 17509379 (Version 1)
Quarter: 2020Q1

REPORT INFORMATION
  Report Type: Spontaneous
  Country: US (occurrence: US)
  Receive Date: 20200306
  Receipt Date: 20200306
  Transmission Date: 20200409
  Serious: Yes (Other)
  Sender: FDA-Public Use
  Company Number: None

PATIENT
  Age: 53 Year
  Sex: Male

DRUGS (5)
  1. BEOVU [Suspect]
     Active Substance: BROLUCIZUMAB-DBLL
     Indication: NEOVASCULAR AGE-RELATED MACULAR DEGENERATION
     Dosage: ?          OTHER FREQUENCY:MONTHLY;OTHER ROUTE:INTRAVITREAL?
     Dates: start: 20200120, end: 20200120
  2. BISOPROLOL FURMATE 5MG [Concomitant]
  3. ALLOPURINOL 100MG [Concomitant]
     Active Substance: ALLOPURINOL
  4. ROSUVASTATIN 10MG [Concomitant]
     Active Substance: ROSUVASTATIN
  5. LISINOPRIL 10MG [Concomitant]
     Active Substance: LISINOPRIL

REACTIONS (1)
  - Vitritis [None]

NARRATIVE: CASE EVENT DATE: 20200120
